FAERS Safety Report 5290353-7 (Version None)
Quarter: 2007Q2

REPORT INFORMATION
  Report Type: 
  Country: None (occurrence: None)
  Receive Date: 20070409
  Receipt Date: 20070329
  Transmission Date: 20071010
  Serious: Yes (Other)
  Sender: FDA-Public Use
  Company Number: PHNU2007DE01374

PATIENT
  Age: 75 Year
  Sex: Female

DRUGS (1)
  1. AREDIA [Suspect]
     Indication: METASTASES TO BONE
     Dosage: 90 MG, TIW
     Route: 042
     Dates: start: 20030101

REACTIONS (1)
  - OSTEONECROSIS [None]
